FAERS Safety Report 13424531 (Version 3)
Quarter: 2017Q3

REPORT INFORMATION
  Report Type: Report from Study
  Country: None (occurrence: NL)
  Receive Date: 20170410
  Receipt Date: 20170804
  Transmission Date: 20171127
  Serious: Yes (Hospitalization)
  Sender: FDA-Public Use
  Company Number: NL-ABBVIE-17P-114-1845683-00

PATIENT
  Age: 65 Year
  Sex: Female

DRUGS (7)
  1. AMLODIPINE [Concomitant]
     Active Substance: AMLODIPINE BESYLATE
     Indication: HYPERTENSION
  2. EXVIERA [Suspect]
     Active Substance: DASABUVIR
     Indication: CHRONIC HEPATITIS C
     Dosage: EVERY MORNING AND EVENING
     Route: 048
     Dates: start: 20160915, end: 20161207
  3. SELOKEEN [Concomitant]
     Active Substance: METOPROLOL
     Indication: HYPERTENSION
  4. BROMAZEPAM [Concomitant]
     Active Substance: BROMAZEPAM
     Indication: HYPERTENSION
  5. PARACETAMOL/CODEINE [Concomitant]
     Active Substance: ACETAMINOPHEN\CODEINE PHOSPHATE
     Indication: PRODUCT USED FOR UNKNOWN INDICATION
  6. VIEKIRAX [Suspect]
     Active Substance: OMBITASVIR\PARITAPREVIR\RITONAVIR
     Indication: CHRONIC HEPATITIS C
     Dosage: EVERY MORNING
     Route: 048
     Dates: start: 20160915, end: 20161207
  7. ASCAL [Concomitant]
     Active Substance: CARBASPIRIN
     Indication: CEREBROVASCULAR ACCIDENT

REACTIONS (4)
  - Myocardial infarction [Recovered/Resolved]
  - Constipation [Recovered/Resolved]
  - Headache [Recovered/Resolved]
  - Weight decreased [Recovered/Resolved]

NARRATIVE: CASE EVENT DATE: 20161012
